FAERS Safety Report 13206795 (Version 2)
Quarter: 2017Q2

REPORT INFORMATION
  Report Type: Spontaneous
  Country: US (occurrence: US)
  Receive Date: 20170209
  Receipt Date: 20170503
  Transmission Date: 20170830
  Serious: No
  Sender: FDA-Public Use
  Company Number: US-SA-2016SA222998

PATIENT
  Age: 75 Year
  Sex: Female
  Weight: 66.2 kg

DRUGS (4)
  1. PRALUENT [Suspect]
     Active Substance: ALIROCUMAB
     Indication: HYPERCHOLESTEROLAEMIA
     Route: 058
     Dates: start: 201610, end: 20161130
  2. ALIROCUMAB PREFILLED PEN [Concomitant]
     Active Substance: ALIROCUMAB
     Dates: start: 20161109
  3. SYNTHROID [Concomitant]
     Active Substance: LEVOTHYROXINE SODIUM
     Indication: THYROID DISORDER
     Dates: start: 1997
  4. PRALUENT [Suspect]
     Active Substance: ALIROCUMAB
     Indication: HYPERCHOLESTEROLAEMIA
     Route: 065
     Dates: start: 20170211

REACTIONS (8)
  - Sinus pain [Recovering/Resolving]
  - Influenza like illness [Recovering/Resolving]
  - Headache [Unknown]
  - Nausea [Unknown]
  - Nasal congestion [Recovering/Resolving]
  - Respiratory disorder [Recovering/Resolving]
  - Secretion discharge [Recovering/Resolving]
  - Paranasal sinus discomfort [Unknown]

NARRATIVE: CASE EVENT DATE: 201612
